FAERS Safety Report 9797529 (Version 1)
Quarter: 2014Q1

REPORT INFORMATION
  Report Type: Spontaneous
  Country: IN (occurrence: IN)
  Receive Date: 20140106
  Receipt Date: 20140106
  Transmission Date: 20141002
  Serious: Yes (Other)
  Sender: FDA-Public Use
  Company Number: PHHY2013IN150405

PATIENT
  Age: 58 Year
  Sex: Male

DRUGS (1)
  1. DICLOFENAC [Suspect]
     Indication: HEADACHE

REACTIONS (6)
  - Drug eruption [Unknown]
  - Skin exfoliation [Unknown]
  - Pruritus [Unknown]
  - Rash [Unknown]
  - Skin hyperpigmentation [Unknown]
  - Skin plaque [Unknown]
